FAERS Safety Report 10038583 (Version 1)
Quarter: 2014Q1

REPORT INFORMATION
  Report Type: Spontaneous
  Country: US (occurrence: None)
  Receive Date: 20140306
  Receipt Date: 20140306
  Transmission Date: 20141002
  Serious: Yes (Hospitalization, Other)
  Sender: FDA-Public Use
  Company Number: 163-21880-12090859

PATIENT
  Age: 81 Year
  Sex: Female

DRUGS (6)
  1. REVLIMID (LENALIDOMIDE) (10 MILLIGRAM, CAPSULES) [Suspect]
     Indication: PLASMA CELL MYELOMA
     Dosage: 1 IN 1 D
     Route: 048
     Dates: start: 20110519
  2. MELPHALAN [Concomitant]
  3. PREDNISONE [Concomitant]
  4. DECADRON (DEXAMETHASONE) [Concomitant]
  5. ASPIRIN (ACETYLSALICYLIC ACID) [Concomitant]
  6. COUMADIN (WARFARIN SODIUM) [Concomitant]

REACTIONS (3)
  - Neutropenia [None]
  - Pulmonary embolism [None]
  - Deep vein thrombosis [None]
